FAERS Safety Report 8051411-7 (Version None)
Quarter: 2012Q1

REPORT INFORMATION
  Report Type: 
  Country: None (occurrence: None)
  Receive Date: 20120117
  Receipt Date: 20120110
  Transmission Date: 20120608
  Serious: Yes (Other)
  Sender: FDA-Public Use
  Company Number: JP-ASTRAZENECA-2012SE02306

PATIENT
  Sex: Female

DRUGS (2)
  1. SEIROGAN [Suspect]
     Route: 048
  2. CANDESARTAN CILEXETIL [Suspect]
     Route: 048

REACTIONS (1)
  - LIP SWELLING [None]
